FAERS Safety Report 5054189-4 (Version None)
Quarter: 2006Q3

REPORT INFORMATION
  Report Type: 
  Country: None (occurrence: None)
  Receive Date: 20060718
  Receipt Date: 20060712
  Transmission Date: 20061208
  Serious: Yes (Death, Hospitalization)
  Sender: FDA-Public Use
  Company Number: FR-BRISTOL-MYERS SQUIBB COMPANY-13440763

PATIENT
  Age: 53 Year
  Sex: Male

DRUGS (6)
  1. COUMADIN [Suspect]
     Indication: PHLEBITIS
     Route: 048
     Dates: start: 20060405
  2. COUMADIN [Suspect]
     Indication: THROMBOPHLEBITIS
     Route: 048
     Dates: start: 20060405
  3. INVANZ [Suspect]
     Indication: PNEUMONIA BACTERIAL
     Dosage: STOPPED (DATE UNSPECIFIED), RE-STARTED 16-MAR-2006, THEN WITHDRAWN 14-APR-2006
     Route: 042
     Dates: start: 20060223, end: 20060414
  4. PREVISCAN [Suspect]
     Indication: PHLEBITIS
     Dosage: START DATE: 19-FEB-2006 OR 20-FEB-2006
     Route: 048
     Dates: start: 20060201, end: 20060228
  5. PREVISCAN [Suspect]
     Indication: THROMBOPHLEBITIS
     Dosage: START DATE: 19-FEB-2006 OR 20-FEB-2006
     Route: 048
     Dates: start: 20060201, end: 20060228
  6. MIXTARD HUMAN 70/30 [Concomitant]
     Indication: DIABETES MELLITUS

REACTIONS (5)
  - DEATH [None]
  - DRUG INEFFECTIVE [None]
  - ESCHERICHIA INFECTION [None]
  - PATHOGEN RESISTANCE [None]
  - THERAPEUTIC RESPONSE DECREASED [None]
